FAERS Safety Report 8417283-3 (Version None)
Quarter: 2012Q2

REPORT INFORMATION
  Report Type: 
  Country: None (occurrence: None)
  Receive Date: 20120606
  Receipt Date: 20120525
  Transmission Date: 20120825
  Serious: No
  Sender: FDA-Public Use
  Company Number: US-B.I. PHARMACEUTICALS,INC./RIDGEFIELD-2012-BP-12441BP

PATIENT
  Age: 73 Year
  Sex: Male

DRUGS (6)
  1. RANITIDINE [Concomitant]
     Indication: DYSPEPSIA
  2. LANSOPRAZOLE [Concomitant]
     Indication: DYSPEPSIA
     Dosage: 30 MG
     Route: 048
  3. SPIRIVA [Suspect]
     Indication: CHRONIC OBSTRUCTIVE PULMONARY DISEASE
     Dosage: 18 MCG
     Route: 055
     Dates: start: 20120410, end: 20120515
  4. LISINOPRIL [Concomitant]
     Indication: HYPERTENSION
     Dosage: 20 MG
     Route: 048
  5. FLOMAX [Concomitant]
     Indication: DYSURIA
     Dosage: 0.4 MG
     Route: 048
  6. VITAMIN B COMPLEX CAP [Concomitant]
     Indication: SUPPLEMENTATION THERAPY
     Dosage: 5000 U
     Route: 060

REACTIONS (4)
  - DYSPNOEA [None]
  - PRURITUS [None]
  - DRY MOUTH [None]
  - INSOMNIA [None]
